FAERS Safety Report 25135661 (Version 1)
Quarter: 2025Q1

REPORT INFORMATION
  Report Type: Spontaneous
  Country: IT (occurrence: IT)
  Receive Date: 20250328
  Receipt Date: 20250328
  Transmission Date: 20250408
  Serious: Yes (Hospitalization)
  Sender: HIKMA
  Company Number: None

PATIENT
  Age: 16 Year
  Sex: Female
  Weight: 59 kg

DRUGS (3)
  1. CYTARABINE [Suspect]
     Active Substance: CYTARABINE
     Indication: Precursor B-lymphoblastic lymphoma
     Dosage: 120 MILLIGRAM, QD
     Route: 042
     Dates: start: 20250217, end: 20250220
  2. CYCLOPHOSPHAMIDE [Suspect]
     Active Substance: CYCLOPHOSPHAMIDE
     Indication: Precursor B-lymphoblastic lymphoma
     Route: 042
     Dates: start: 20250214
  3. PURINETHOL [Suspect]
     Active Substance: MERCAPTOPURINE
     Indication: Precursor B-lymphoblastic lymphoma
     Dosage: 50 MILLIGRAM, BID
     Route: 048
     Dates: start: 20250214

REACTIONS (1)
  - Febrile neutropenia [Recovering/Resolving]

NARRATIVE: CASE EVENT DATE: 20250224
